FAERS Safety Report 12840294 (Version 1)
Quarter: 2016Q4

REPORT INFORMATION
  Report Type: Spontaneous
  Country: GB (occurrence: GB)
  Receive Date: 20161012
  Receipt Date: 20161012
  Transmission Date: 20170207
  Serious: Yes (Disabling)
  Sender: FDA-Public Use
  Company Number: GB-009507513-1610GBR004458

PATIENT
  Age: 76 Year

DRUGS (1)
  1. MIRTAZAPINE. [Suspect]
     Active Substance: MIRTAZAPINE
     Dosage: AT NIGHT
     Route: 048

REACTIONS (1)
  - Tardive dyskinesia [Not Recovered/Not Resolved]
